FAERS Safety Report 8447265 (Version 2)
Quarter: 2013Q2

REPORT INFORMATION
  Report Type: Spontaneous
  Country: CA (occurrence: CA)
  Receive Date: 20120308
  Receipt Date: 20130508
  Transmission Date: 20140414
  Serious: Yes (Hospitalization, Other)
  Sender: FDA-Public Use
  Company Number: CA-JNJFOC-20120301310

PATIENT
  Age: 49 Year
  Sex: Female
  Weight: 92.2 kg

DRUGS (8)
  1. REMICADE [Suspect]
     Indication: CROHN^S DISEASE
     Route: 042
     Dates: start: 201004
  2. IMURAN [Concomitant]
     Route: 065
  3. GABAPENTIN [Concomitant]
     Route: 065
  4. PAROSEPTINE [Concomitant]
     Route: 065
  5. CLONAZEPAM [Concomitant]
     Route: 065
  6. SALAZINE [Concomitant]
     Route: 065
  7. RISPERDAL [Concomitant]
     Route: 065
  8. IMOVANE [Concomitant]
     Route: 065

REACTIONS (3)
  - Knee operation [Unknown]
  - Post procedural infection [Recovered/Resolved]
  - Staphylococcal infection [Unknown]
